FAERS Safety Report 4293714-8 (Version None)
Quarter: 2004Q1

REPORT INFORMATION
  Report Type: 
  Country: None (occurrence: None)
  Receive Date: 20040212
  Receipt Date: 20031120
  Transmission Date: 20041129
  Serious: Yes (Other)
  Sender: FDA-Public Use
  Company Number: CA-GLAXOSMITHKLINE-A0440885A

PATIENT
  Age: 12 Year
  Sex: Male

DRUGS (4)
  1. FLOVENT [Suspect]
     Indication: ASTHMA
     Dosage: 2PUFF TWICE PER DAY
     Route: 055
     Dates: start: 20031029, end: 20031107
  2. SYMBICORT [Suspect]
     Indication: ILL-DEFINED DISORDER
     Route: 065
     Dates: start: 20031022, end: 20031107
  3. AEROCHAMBER [Suspect]
     Indication: ILL-DEFINED DISORDER
     Route: 065
     Dates: end: 20031107
  4. SULFATRIM [Concomitant]
     Dosage: 8MG UNKNOWN
     Route: 065
     Dates: start: 20031105, end: 20031107

REACTIONS (3)
  - CONDITION AGGRAVATED [None]
  - HALLUCINATION, AUDITORY [None]
  - SELF-INJURIOUS IDEATION [None]
